FAERS Safety Report 18439324 (Version 1)
Quarter: 2020Q4

REPORT INFORMATION
  Report Type: Spontaneous
  Country: CA (occurrence: CA)
  Receive Date: 20201028
  Receipt Date: 20201028
  Transmission Date: 20210114
  Serious: Yes (Other)
  Sender: FDA-Public Use
  Company Number: CA-BAXTER-2020BAX021656

PATIENT
  Age: 56 Year
  Sex: Male

DRUGS (7)
  1. PREDNISONE. [Suspect]
     Active Substance: PREDNISONE
     Dosage: DOSE INCREASED AFTER EVENT
     Route: 065
  2. IMURAN [Suspect]
     Active Substance: AZATHIOPRINE
     Indication: VASCULITIS
  3. PROCYTOX (CYCLOPHOSPHAMIDE) 2000MG/VIAL [Suspect]
     Active Substance: CYCLOPHOSPHAMIDE
     Indication: MONONEUROPATHY MULTIPLEX
     Dosage: USING PEXIVAS PROTOCOL, FOR 10 DOSES, 10 MONTH COURSE
     Route: 042
     Dates: start: 201712, end: 201805
  4. IMURAN [Suspect]
     Active Substance: AZATHIOPRINE
     Indication: MONONEUROPATHY MULTIPLEX
     Dosage: ON MAINTENANCE
     Route: 065
     Dates: start: 201806
  5. PREDNISONE. [Suspect]
     Active Substance: PREDNISONE
     Indication: MONONEUROPATHY MULTIPLEX
     Route: 065
     Dates: start: 201712
  6. PROCYTOX (CYCLOPHOSPHAMIDE) 2000MG/VIAL [Suspect]
     Active Substance: CYCLOPHOSPHAMIDE
     Indication: VASCULITIS
  7. PREDNISONE. [Suspect]
     Active Substance: PREDNISONE
     Indication: VASCULITIS
     Dosage: FROM 60 MG SLOWLY TAPERED TO 10MG
     Route: 065

REACTIONS (1)
  - Cerebrovascular accident [Unknown]
